FAERS Safety Report 13111200 (Version 3)
Quarter: 2018Q2

REPORT INFORMATION
  Report Type: Spontaneous
  Country: DE (occurrence: DE)
  Receive Date: 20170112
  Receipt Date: 20180427
  Transmission Date: 20180711
  Serious: Yes (Life-Threatening, Hospitalization, Disabling, Other)
  Sender: FDA-Public Use
  Company Number: DE-EMD SERONO-8119959

PATIENT
  Age: 22 Year
  Sex: Female
  Weight: 80 kg

DRUGS (1)
  1. REBIF [Suspect]
     Active Substance: INTERFERON BETA-1A
     Indication: MULTIPLE SCLEROSIS
     Route: 058
     Dates: start: 201604, end: 201609

REACTIONS (10)
  - Rheumatic disorder [Not Recovered/Not Resolved]
  - Muscular weakness [Unknown]
  - Neuromyelitis optica spectrum disorder [Unknown]
  - Radius fracture [Not Recovered/Not Resolved]
  - Cerebral infarction [Unknown]
  - Vasculitis [Not Recovered/Not Resolved]
  - Encephalitis [Unknown]
  - Adverse drug reaction [Unknown]
  - Panniculitis [Not Recovered/Not Resolved]
  - Myositis [Not Recovered/Not Resolved]

NARRATIVE: CASE EVENT DATE: 20160801
